FAERS Safety Report 4297076-1 (Version None)
Quarter: 2004Q1

REPORT INFORMATION
  Report Type: 
  Country: None (occurrence: None)
  Receive Date: 20040126
  Receipt Date: 20030902
  Transmission Date: 20041129
  Serious: No
  Sender: FDA-Public Use
  Company Number: USA030946024

PATIENT
  Age: 9 Year
  Sex: Male
  Weight: 43 kg

DRUGS (2)
  1. STRATTERA [Suspect]
     Dosage: 40 MG/DAY
     Dates: start: 20030828
  2. UNKNOWN [Concomitant]

REACTIONS (1)
  - RETCHING [None]
